FAERS Safety Report 21597390 (Version 1)
Quarter: 2022Q4

REPORT INFORMATION
  Report Type: Spontaneous
  Country: US (occurrence: None)
  Receive Date: 20221114
  Receipt Date: 20221114
  Transmission Date: 20230112
  Serious: Yes (Life-Threatening, Hospitalization, Other)
  Sender: FDA-Public Use
  Company Number: None

PATIENT
  Age: 74 Year
  Sex: Male
  Weight: 107.5 kg

DRUGS (2)
  1. ENTRESTO [Suspect]
     Active Substance: SACUBITRIL\VALSARTAN
     Indication: Cardiac failure
     Dosage: FREQUENCY : TWICE A DAY;?
     Route: 048
     Dates: start: 20221004, end: 20221018
  2. ATORVASTATIN [Suspect]
     Active Substance: ATORVASTATIN
     Indication: Acute myocardial infarction
     Dosage: FREQUENCY : DAILY;?
     Route: 048
     Dates: start: 20220926, end: 20221018

REACTIONS (16)
  - Blood creatinine increased [None]
  - Fatigue [None]
  - Aspartate aminotransferase increased [None]
  - Alanine aminotransferase increased [None]
  - Blood alkaline phosphatase increased [None]
  - Blood bilirubin increased [None]
  - Blood urea increased [None]
  - Therapy interrupted [None]
  - Liver injury [None]
  - Acute kidney injury [None]
  - Blood creatine phosphokinase increased [None]
  - Rhabdomyolysis [None]
  - Ventricular fibrillation [None]
  - Cardiac arrest [None]
  - Cardiac failure [None]
  - Hypervolaemia [None]

NARRATIVE: CASE EVENT DATE: 20221018
